FAERS Safety Report 21184113 (Version 1)
Quarter: 2022Q3

REPORT INFORMATION
  Report Type: Spontaneous
  Country: ES (occurrence: ES)
  Receive Date: 20220808
  Receipt Date: 20220808
  Transmission Date: 20221027
  Serious: Yes (Other)
  Sender: FDA-Public Use
  Company Number: ES-AMGEN-ESPSP2022134019

PATIENT
  Age: 17 Year
  Sex: Male

DRUGS (1)
  1. ADALIMUMAB [Suspect]
     Active Substance: ADALIMUMAB
     Indication: Crohn^s disease
     Dosage: UNK
     Route: 065
     Dates: start: 2019

REACTIONS (3)
  - Inflammatory bowel disease [Unknown]
  - Therapeutic product effect incomplete [Unknown]
  - Chronic recurrent multifocal osteomyelitis [Recovered/Resolved]

NARRATIVE: CASE EVENT DATE: 20190101
